FAERS Safety Report 7166450-8 (Version None)
Quarter: 2010Q4

REPORT INFORMATION
  Report Type: 
  Country: None (occurrence: None)
  Receive Date: 20101216
  Receipt Date: 20101202
  Transmission Date: 20110411
  Serious: Yes (Other)
  Sender: FDA-Public Use
  Company Number: PHHY2010US75770

PATIENT
  Sex: Female

DRUGS (16)
  1. EXJADE [Suspect]
     Indication: MULTIPLE MYELOMA
     Dosage: 500 MG, BID
     Route: 048
     Dates: start: 20100928
  2. AMBIEN [Concomitant]
  3. CLOTRIMAZOLE [Concomitant]
  4. ASPIRIN [Concomitant]
  5. COLACE [Concomitant]
  6. MORPHINE [Concomitant]
  7. ATIVAN [Concomitant]
  8. DEXAMETHASONE [Concomitant]
  9. VELCADE [Concomitant]
  10. ASCORBIC ACID [Concomitant]
  11. ACYCLOVIR SODIUM [Concomitant]
  12. REVLIMID [Concomitant]
  13. SULFAMETHOXAZOLE [Concomitant]
  14. ZOFRAN [Concomitant]
  15. PROCHLORPERAZINE [Concomitant]
  16. PRILOSEC [Concomitant]

REACTIONS (2)
  - BLOOD PRESSURE INCREASED [None]
  - HEPATIC ENZYME INCREASED [None]
